FAERS Safety Report 21629492 (Version 1)
Quarter: 2022Q4

REPORT INFORMATION
  Report Type: Spontaneous
  Country: IN (occurrence: IN)
  Receive Date: 20221122
  Receipt Date: 20221122
  Transmission Date: 20230112
  Serious: Yes (Hospitalization)
  Sender: FDA-Public Use
  Company Number: IN-PFIZER INC-PV202200106608

PATIENT
  Age: 75 Year
  Sex: Female

DRUGS (13)
  1. PALBOCICLIB [Suspect]
     Active Substance: PALBOCICLIB
     Indication: Breast cancer
     Dosage: 125 MG, ONCE DAILY FROM D1-D21 THEN 7 DAYS GAP
     Dates: start: 2021
  2. PALBOCICLIB [Suspect]
     Active Substance: PALBOCICLIB
     Dosage: 125 MG, ONCE DAILY FROM D1-D21 THEN 7 DAYS GAP
     Dates: start: 20220925, end: 202210
  3. ROSEDAY A [Concomitant]
     Dosage: 10 MG, 1X/DAY
  4. LEVOTHYROXINE [Concomitant]
     Active Substance: LEVOTHYROXINE
     Dosage: 1 DF, 1X/DAY
  5. VERTIN [BETAHISTINE HYDROCHLORIDE] [Concomitant]
     Dosage: 1 DF, 2X/DAY
  6. FEBUXOSTAT [Concomitant]
     Active Substance: FEBUXOSTAT
     Dosage: 1 DF, 1X/DAY
  7. OLSAR [OLMESARTAN MEDOXOMIL] [Concomitant]
     Dosage: 1 DF, 1X/DAY
  8. ALPRAZOLAM [Concomitant]
     Active Substance: ALPRAZOLAM
     Dosage: 1 DF, 1X/DAY
  9. MUCOBENZ [Concomitant]
     Dosage: UNK, 3X/DAY
  10. METFORMIN HYDROCHLORIDE\SITAGLIPTIN PHOSPHATE [Concomitant]
     Active Substance: METFORMIN HYDROCHLORIDE\SITAGLIPTIN PHOSPHATE
     Dosage: 1 DF, 2X/DAY
  11. UDAPA [Concomitant]
     Dosage: 1 DF, 1X/DAY
  12. FULVETRAZ [Concomitant]
     Dosage: UNK
     Dates: start: 20220924
  13. Injection ROMISET [Concomitant]
     Dosage: UNK
     Dates: start: 20220924

REACTIONS (4)
  - Abdominal pain [Unknown]
  - Postprandial hypoglycaemia [Unknown]
  - Product complaint [Unknown]
  - Inappropriate schedule of product administration [Unknown]

NARRATIVE: CASE EVENT DATE: 20221001
